FAERS Safety Report 15904935 (Version 1)
Quarter: 2019Q1

REPORT INFORMATION
  Report Type: Spontaneous
  Country: DE (occurrence: DE)
  Receive Date: 20190204
  Receipt Date: 20190204
  Transmission Date: 20190417
  Serious: Yes (Life-Threatening, Hospitalization, Disabling, Other)
  Sender: FDA-Public Use
  Company Number: DE-BAYER-2019-017455

PATIENT
  Age: 31 Year
  Sex: Female
  Weight: 58 kg

DRUGS (5)
  1. MIRENA [Suspect]
     Active Substance: LEVONORGESTREL
     Indication: CONTRACEPTION
     Dosage: UNK
     Route: 015
  2. FSME-IMMUN [Suspect]
     Active Substance: TICK-BORNE ENCEPHALITIS VACCINE
     Indication: IMMUNISATION
     Dosage: 1 DF, UNK
     Route: 030
  3. FSME-IMMUN [Suspect]
     Active Substance: TICK-BORNE ENCEPHALITIS VACCINE
     Indication: IMMUNISATION
  4. REPEVAX [Suspect]
     Active Substance: DIPHTHERIA AND TETANUS TOXOIDS AND ACELLULAR PERTUSSIS ADSORBED AND INACTIVATED POLIOVIRUS VACCINE
     Indication: IMMUNISATION
     Dosage: 1 DF, UNK
     Route: 030
  5. REPEVAX [Suspect]
     Active Substance: DIPHTHERIA AND TETANUS TOXOIDS AND ACELLULAR PERTUSSIS ADSORBED AND INACTIVATED POLIOVIRUS VACCINE
     Indication: IMMUNISATION

REACTIONS (3)
  - Generalised tonic-clonic seizure [Not Recovered/Not Resolved]
  - Headache [Not Recovered/Not Resolved]
  - Astrocytoma malignant [Not Recovered/Not Resolved]

NARRATIVE: CASE EVENT DATE: 20180420
